FAERS Safety Report 13696272 (Version 3)
Quarter: 2017Q4

REPORT INFORMATION
  Report Type: Spontaneous
  Country: JP (occurrence: JP)
  Receive Date: 20170628
  Receipt Date: 20171106
  Transmission Date: 20180320
  Serious: Yes (Death, Other)
  Sender: FDA-Public Use
  Company Number: JP-ROCHE-1923331

PATIENT
  Age: 46 Year
  Sex: Female
  Weight: 37 kg

DRUGS (8)
  1. CISPLATIN. [Concomitant]
     Active Substance: CISPLATIN
     Indication: CERVIX CARCINOMA
     Dosage: DOSAGE IS UNCERTAIN.
     Route: 041
     Dates: start: 20170201, end: 20170329
  2. MANNITOL. [Concomitant]
     Active Substance: MANNITOL
     Dosage: DOSAGE IS UNCERTAIN.
     Route: 065
     Dates: start: 20170202, end: 20170330
  3. PACLITAXEL. [Concomitant]
     Active Substance: PACLITAXEL
     Indication: CERVIX CARCINOMA
     Dosage: DOSAGE IS UNCERTAIN.
     Route: 041
     Dates: start: 20170201, end: 20170329
  4. AVASTIN [Suspect]
     Active Substance: BEVACIZUMAB
     Indication: CERVIX CARCINOMA
     Dosage: TREATMENT LINE: 2
     Route: 041
     Dates: start: 20170202, end: 20170330
  5. ALOXI [Concomitant]
     Active Substance: PALONOSETRON HYDROCHLORIDE
     Dosage: DOSAGE IS UNCERTAIN.
     Route: 065
     Dates: start: 20170202, end: 20170330
  6. GRANISETRON [Concomitant]
     Active Substance: GRANISETRON
     Dosage: DOSAGE IS UNCERTAIN.
     Route: 065
     Dates: start: 20170201, end: 20170329
  7. RANITIDINE. [Concomitant]
     Active Substance: RANITIDINE
     Dosage: DOSAGE IS UNCERTAIN.
     Route: 065
     Dates: start: 20170201, end: 20170329
  8. DECADRON [Concomitant]
     Active Substance: DEXAMETHASONE
     Dosage: DOSAGE IS UNCERTAIN.
     Route: 065
     Dates: start: 20170201, end: 20170330

REACTIONS (5)
  - Gastrointestinal necrosis [Unknown]
  - Colitis ischaemic [Fatal]
  - Subdiaphragmatic abscess [Unknown]
  - Large intestine perforation [Fatal]
  - Infection [Fatal]

NARRATIVE: CASE EVENT DATE: 20170407
